FAERS Safety Report 22001672 (Version 1)
Quarter: 2023Q1

REPORT INFORMATION
  Report Type: Spontaneous
  Country: US (occurrence: US)
  Receive Date: 20230216
  Receipt Date: 20230216
  Transmission Date: 20230417
  Serious: No
  Sender: FDA-Public Use
  Company Number: US-BRISTOL-MYERS SQUIBB COMPANY-2023-020382

PATIENT
  Age: 71 Year
  Sex: Female
  Weight: 102.06 kg

DRUGS (2)
  1. ORENCIA [Suspect]
     Active Substance: ABATACEPT
     Indication: Psoriatic arthropathy
     Route: 042
  2. HUMALOG [Concomitant]
     Active Substance: INSULIN LISPRO
     Indication: Diabetes mellitus

REACTIONS (8)
  - Chills [Unknown]
  - Emotional disorder [Unknown]
  - Tremor [Unknown]
  - Pain in jaw [Unknown]
  - Headache [Not Recovered/Not Resolved]
  - Blood glucose abnormal [Recovering/Resolving]
  - Dyspnoea [Unknown]
  - Therapeutic product effect decreased [Unknown]

NARRATIVE: CASE EVENT DATE: 20230208
